FAERS Safety Report 6109440-6 (Version None)
Quarter: 2009Q1

REPORT INFORMATION
  Report Type: 
  Country: None (occurrence: None)
  Receive Date: 20090310
  Receipt Date: 20090309
  Transmission Date: 20090719
  Serious: Yes (Hospitalization)
  Sender: FDA-Public Use
  Company Number: US-GENENTECH-265700

PATIENT
  Age: 59 Year
  Sex: Female

DRUGS (23)
  1. RITUXIMAB [Suspect]
     Indication: B-CELL LYMPHOMA
     Dosage: 375 MG/M2, UNK
     Route: 042
     Dates: start: 20070925
  2. METHOTREXATE [Suspect]
     Indication: B-CELL LYMPHOMA
     Dosage: 100 MG/M2, UNK
     Route: 042
     Dates: start: 20070926
  3. METHOTREXATE [Suspect]
     Dosage: 400 MG/M2, UNK
     Route: 042
     Dates: start: 20070926
  4. CYTARABINE [Suspect]
     Indication: B-CELL LYMPHOMA
     Dosage: 1 G/M2, UNK
     Route: 042
     Dates: start: 20070927
  5. LEUCOVORIN CALCIUM [Suspect]
     Indication: B-CELL LYMPHOMA
     Dosage: 50 MG, UNK
     Route: 048
  6. LEUCOVORIN CALCIUM [Suspect]
     Dosage: 15 MG, UNK
     Route: 048
  7. AQUAPHOR (UNITED STATES) [Concomitant]
     Indication: DRUG USE FOR UNKNOWN INDICATION
  8. ATIVAN [Concomitant]
     Indication: DRUG USE FOR UNKNOWN INDICATION
  9. AUGMENTIN [Concomitant]
  10. BENADRYL [Concomitant]
     Indication: DRUG USE FOR UNKNOWN INDICATION
  11. EPIVIR [Concomitant]
     Indication: DRUG USE FOR UNKNOWN INDICATION
  12. LOVENOX [Concomitant]
     Indication: DRUG USE FOR UNKNOWN INDICATION
  13. MECLIZINE [Concomitant]
     Indication: DRUG USE FOR UNKNOWN INDICATION
  14. MICONAZOLE [Concomitant]
     Indication: DRUG USE FOR UNKNOWN INDICATION
  15. NEUPOGEN [Concomitant]
     Indication: DRUG USE FOR UNKNOWN INDICATION
  16. NORVASC [Concomitant]
     Indication: DRUG USE FOR UNKNOWN INDICATION
  17. OXYCODONE [Concomitant]
     Indication: DRUG USE FOR UNKNOWN INDICATION
  18. PHENERGAN [Concomitant]
     Indication: DRUG USE FOR UNKNOWN INDICATION
  19. PRED FORTE [Concomitant]
     Indication: DRUG USE FOR UNKNOWN INDICATION
  20. PROTONIX [Concomitant]
     Indication: DRUG USE FOR UNKNOWN INDICATION
  21. SENOKOT [Concomitant]
     Indication: DRUG USE FOR UNKNOWN INDICATION
  22. TRIAMCINOLONE [Concomitant]
     Indication: DRUG USE FOR UNKNOWN INDICATION
  23. VALTREX [Concomitant]
     Indication: DRUG USE FOR UNKNOWN INDICATION

REACTIONS (1)
  - FEBRILE NEUTROPENIA [None]
